FAERS Safety Report 7646557-9 (Version None)
Quarter: 2011Q3

REPORT INFORMATION
  Report Type: 
  Country: None (occurrence: None)
  Receive Date: 20110725
  Receipt Date: 20110707
  Transmission Date: 20111222
  Serious: Yes (Other)
  Sender: FDA-Public Use
  Company Number: JHP201100349

PATIENT
  Age: 60 Year
  Sex: Male

DRUGS (10)
  1. DANTROLENE SODIUM [Suspect]
     Indication: HYPERTHERMIA MALIGNANT
     Dosage: 900 MG, TOTAL, INTRAVENOUS
     Route: 042
  2. FENTANYL [Concomitant]
  3. LIDOCAINE (LIDOCAINE HYDROCHLORIDE) [Concomitant]
  4. MANNITOL [Concomitant]
  5. PANCURONIUM (PANCURONIUM) [Concomitant]
  6. BICARBONATE (SODIUM BICARBONATE) [Concomitant]
  7. PHENYLEPHRINE HCL [Concomitant]
  8. MIDAZOLAM HYDROCHLORIDE [Concomitant]
  9. ISOFLURANE [Concomitant]
  10. LASIX [Concomitant]

REACTIONS (2)
  - RESPIRATORY FAILURE [None]
  - MUSCULAR WEAKNESS [None]
